FAERS Safety Report 10890428 (Version 2)
Quarter: 2015Q1

REPORT INFORMATION
  Report Type: Spontaneous
  Country: FR (occurrence: FR)
  Receive Date: 20150305
  Receipt Date: 20150306
  Transmission Date: 20150721
  Serious: Yes (Hospitalization)
  Sender: FDA-Public Use
  Company Number: FR-PFIZER INC-2015073157

PATIENT
  Age: 74 Year
  Sex: Male

DRUGS (5)
  1. ZANIDIP [Concomitant]
     Active Substance: LERCANIDIPINE HYDROCHLORIDE
     Dosage: UNK
  2. TRIATEC [Concomitant]
     Active Substance: RAMIPRIL
     Dosage: UNK
  3. FLUDEX - SLOW RELEASE [Concomitant]
     Dosage: UNK
  4. TAHOR [Suspect]
     Active Substance: ATORVASTATIN CALCIUM
     Dosage: 10 MG, 1X/DAY
  5. AVODART [Interacting]
     Active Substance: DUTASTERIDE
     Indication: PROSTATIC DISORDER
     Dosage: UNK
     Dates: start: 201502

REACTIONS (6)
  - Drug interaction [Not Recovered/Not Resolved]
  - Diarrhoea [Not Recovered/Not Resolved]
  - Fatigue [Not Recovered/Not Resolved]
  - Arthralgia [Not Recovered/Not Resolved]
  - Prostatic disorder [Unknown]
  - Pain in extremity [Not Recovered/Not Resolved]

NARRATIVE: CASE EVENT DATE: 201502
